FAERS Safety Report 6604635-7 (Version None)
Quarter: 2010Q1

REPORT INFORMATION
  Report Type: 
  Country: None (occurrence: None)
  Receive Date: 20100226
  Receipt Date: 20100225
  Transmission Date: 20100710
  Serious: Yes (Death, Life-Threatening, Hospitalization)
  Sender: FDA-Public Use
  Company Number: DE-PFIZER INC-2010019307

PATIENT
  Age: 63 Year
  Sex: Female

DRUGS (23)
  1. ZOLOFT [Suspect]
     Indication: PAIN
     Dosage: 50 MG, 1X/DAY
     Route: 048
     Dates: start: 20050711, end: 20050805
  2. ZOLOFT [Suspect]
     Indication: DEPRESSION
  3. TRAMADOL ^RATIOPHARM^ [Suspect]
     Indication: PAIN
     Dosage: 100 MG, 1X/DAY
     Route: 048
     Dates: start: 20050711
  4. APROVEL [Suspect]
     Indication: HYPERTENSION
     Dosage: 300 MG, 1X/DAY
     Route: 048
     Dates: start: 20050711
  5. TOREM [Suspect]
     Indication: HYPERTENSION
     Dosage: 10MG 2-1-0
     Route: 048
     Dates: start: 20031001, end: 20050805
  6. TOREM [Suspect]
     Dosage: 10MG 2-1-0
     Route: 048
     Dates: start: 20050808
  7. HYDROCHLOROTHIAZIDE [Suspect]
     Indication: HYPERTENSION
     Dosage: 25 MG, 1X/DAY
     Route: 048
     Dates: start: 20050711
  8. NEXIUM [Suspect]
     Indication: PROPHYLAXIS
     Dosage: 40 MG, 1X/DAY
     Route: 048
     Dates: start: 20050711
  9. EUTHYROX [Suspect]
     Indication: HYPOTHYROIDISM
     Dosage: 100 UG, 1X/DAY
     Dates: start: 20050711
  10. ASPIRIN [Suspect]
     Indication: THROMBOSIS PROPHYLAXIS
     Dosage: 100 MG, 1X/DAY
     Route: 048
     Dates: start: 20040601
  11. SUPERTENDIN [Suspect]
     Indication: CERVICOBRACHIAL SYNDROME
     Dosage: 10 ML, 2X/DAY
     Route: 058
     Dates: start: 20050722, end: 20050722
  12. SUPERTENDIN [Suspect]
     Dosage: 20 ML, 2X/DAY
     Route: 058
     Dates: start: 20050729, end: 20050729
  13. METOCLOPRAMIDE HYDROCHLORIDE [Suspect]
     Indication: NAUSEA
     Dosage: UNK
     Route: 048
     Dates: start: 20050725
  14. MOVICOL [Suspect]
     Indication: CONSTIPATION
     Dosage: 2-0-1
     Route: 048
     Dates: start: 20050725
  15. AMIODARONE [Suspect]
     Indication: CARDIAC FAILURE
     Dosage: 50 MG, 1X/DAY
     Route: 048
     Dates: start: 20050801, end: 20050805
  16. PALLADONE [Suspect]
     Indication: PAIN
     Dosage: 8 MG, 3X/DAY
     Route: 048
     Dates: start: 20050805
  17. FORMOTEROL [Suspect]
     Indication: CHRONIC OBSTRUCTIVE PULMONARY DISEASE
     Dosage: 1-0-0
     Route: 055
     Dates: start: 20050805
  18. LASIX [Suspect]
     Indication: HYPERTENSION
     Dosage: UNK
     Dates: start: 20050805
  19. HOT THERMO [Suspect]
     Indication: PAIN
     Dosage: 50 MG, UNK
     Route: 061
     Dates: start: 20050805
  20. ATMADISC [Suspect]
     Indication: CHRONIC OBSTRUCTIVE PULMONARY DISEASE
     Dosage: UNK
     Route: 055
     Dates: start: 20050805
  21. DICLOFENAC [Suspect]
     Indication: PERIARTHRITIS
     Dosage: 1-0-0
     Route: 030
     Dates: start: 20050810, end: 20050810
  22. PREDNISOLONE [Suspect]
     Indication: PERIARTHRITIS
     Dosage: UNK
     Route: 030
     Dates: start: 20050810, end: 20050810
  23. MORPHINE [Concomitant]
     Indication: PAIN
     Dosage: UNK
     Dates: start: 20050725, end: 20050725

REACTIONS (1)
  - TOXIC EPIDERMAL NECROLYSIS [None]
